FAERS Safety Report 6925041-1 (Version None)
Quarter: 2010Q3

REPORT INFORMATION
  Report Type: 
  Country: None (occurrence: None)
  Receive Date: 20100816
  Receipt Date: 20100805
  Transmission Date: 20110219
  Serious: Yes (Other)
  Sender: FDA-Public Use
  Company Number: GB-SANOFI-AVENTIS-2010SA044861

PATIENT
  Age: 44 Year
  Sex: Male
  Weight: 86 kg

DRUGS (13)
  1. TAXOTERE [Suspect]
     Indication: PROSTATE CANCER
     Route: 042
     Dates: start: 20091130, end: 20091130
  2. TAXOTERE [Suspect]
     Route: 042
     Dates: start: 20100722, end: 20100722
  3. TAXOTERE [Suspect]
     Route: 042
     Dates: start: 20100812, end: 20100812
  4. ACETAMINOPHEN [Concomitant]
     Indication: PAIN
     Route: 048
  5. NAPROXEN [Concomitant]
     Indication: PAIN
     Route: 048
  6. GABAPENTIN [Concomitant]
     Indication: PAIN
     Route: 048
  7. LANSOPRAZOLE [Concomitant]
     Indication: GASTROINTESTINAL DISORDER
     Route: 048
  8. NULYTELY [Concomitant]
     Indication: CONSTIPATION
     Route: 048
  9. KETAMINE HCL [Concomitant]
     Indication: PAIN
     Route: 042
  10. CASODEX [Concomitant]
     Indication: PROSTATE CANCER
     Route: 048
  11. OXYCONTIN [Concomitant]
     Indication: PAIN
     Route: 048
  12. ZOLEDRONIC ACID [Concomitant]
     Route: 042
  13. ADCAL-D3 [Concomitant]
     Route: 048

REACTIONS (4)
  - ALCOHOL POISONING [None]
  - CONFUSIONAL STATE [None]
  - DIZZINESS [None]
  - SOMNOLENCE [None]
